FAERS Safety Report 23847353 (Version 2)
Quarter: 2024Q3

REPORT INFORMATION
  Report Type: Spontaneous
  Country: US (occurrence: US)
  Receive Date: 20240513
  Receipt Date: 20240904
  Transmission Date: 20241016
  Serious: Yes (Other)
  Sender: CHEPLAPHARM
  Company Number: US-PFIZER INC-202300280386

PATIENT
  Sex: Female

DRUGS (3)
  1. HYDROXYUREA [Suspect]
     Active Substance: HYDROXYUREA
  2. OXBRYTA [Suspect]
     Active Substance: VOXELOTOR
     Dosage: DAILY DOSE: 1500 MILLIGRAM
  3. OXBRYTA [Suspect]
     Active Substance: VOXELOTOR
     Dosage: BY MOUTH?DAILY DOSE: 1500 MILLIGRAM
     Route: 048

REACTIONS (5)
  - Sickle cell anaemia with crisis [Unknown]
  - Skin infection [Unknown]
  - Nail pigmentation [Unknown]
  - Product dose omission issue [Unknown]
  - Localised infection [Unknown]

NARRATIVE: CASE EVENT DATE: 20240430
